FAERS Safety Report 6290531-4 (Version None)
Quarter: 2009Q3

REPORT INFORMATION
  Report Type: 
  Country: None (occurrence: None)
  Receive Date: 20090730
  Receipt Date: 20080922
  Transmission Date: 20100115
  Serious: Yes (Death, Hospitalization, Other)
  Sender: FDA-Public Use
  Company Number: US-BRISTOL-MYERS SQUIBB COMPANY-14343685

PATIENT
  Age: 56 Year
  Sex: Female
  Weight: 96 kg

DRUGS (32)
  1. COUMADIN [Suspect]
     Dosage: FORM : TABLET
     Route: 048
  2. ENOXAPARIN SODIUM [Suspect]
     Indication: DEEP VEIN THROMBOSIS
     Dosage: ROUTE: INJ FORM:ENOXAPARIN SOLUTION FOR INJECTION 200 MG/KG
     Dates: start: 20080516, end: 20080520
  3. AMLODIPINE [Concomitant]
  4. PERIDEX [Concomitant]
  5. LOTRIMIN [Concomitant]
  6. DOCUSATE [Concomitant]
  7. DIFLUCAN [Concomitant]
  8. WATER [Concomitant]
  9. NOVOLOG [Concomitant]
  10. LANTUS [Concomitant]
  11. LACTOBACILLUS [Concomitant]
  12. PREVACID [Concomitant]
  13. COZAAR [Concomitant]
  14. REGLAN [Concomitant]
  15. LOPRESSOR [Concomitant]
  16. DESENEX [Concomitant]
  17. VITAMINS NOS [Concomitant]
  18. NYSTATIN [Concomitant]
  19. PREDNISONE [Concomitant]
  20. TYLENOL (CAPLET) [Concomitant]
  21. DULCOLAX [Concomitant]
  22. DEXTROSE [Concomitant]
  23. ENALAPRILAT [Concomitant]
  24. SODIUM PHOSPHATE DIBASIC [Concomitant]
  25. SODIUM PHOSPHATES [Concomitant]
  26. ATIVAN [Concomitant]
  27. MAGNESIUM [Concomitant]
  28. MILK OF MAGNESIA TAB [Concomitant]
  29. DEXTROSE 5% AND SODIUM CHLORIDE 0.45% IN PLASTIC CONTAINER [Concomitant]
  30. DUONEB [Concomitant]
  31. ENALAPRILAT [Concomitant]
  32. MICONAZOLE [Concomitant]

REACTIONS (7)
  - BLOOD PRESSURE DECREASED [None]
  - CONTUSION [None]
  - HAEMATOCRIT DECREASED [None]
  - HAEMATOMA [None]
  - HAEMOGLOBIN DECREASED [None]
  - HEART RATE INCREASED [None]
  - SHOCK HAEMORRHAGIC [None]
